FAERS Safety Report 10381294 (Version 1)
Quarter: 2014Q3

REPORT INFORMATION
  Report Type: Spontaneous
  Country: JP (occurrence: JP)
  Receive Date: 20140813
  Receipt Date: 20140813
  Transmission Date: 20150326
  Serious: Yes (Hospitalization)
  Sender: FDA-Public Use
  Company Number: JP-ACTAVIS-2014-17239

PATIENT
  Age: 13 Year
  Sex: Female

DRUGS (4)
  1. DICLOFENAC (UNKNOWN) [Suspect]
     Active Substance: DICLOFENAC SODIUM
     Indication: HEADACHE
  2. LOXOPROFEN [Suspect]
     Active Substance: LOXOPROFEN
     Indication: HEADACHE
  3. LOXOPROFEN [Suspect]
     Active Substance: LOXOPROFEN
     Indication: PYREXIA
     Dosage: UNK
     Route: 065
  4. DICLOFENAC (UNKNOWN) [Suspect]
     Active Substance: DICLOFENAC SODIUM
     Indication: PYREXIA
     Dosage: UNK
     Route: 065

REACTIONS (1)
  - Vanishing bile duct syndrome [Recovered/Resolved]
